FAERS Safety Report 8084638-9 (Version None)
Quarter: 2012Q1

REPORT INFORMATION
  Report Type: 
  Country: None (occurrence: None)
  Receive Date: 20120128
  Receipt Date: 20110329
  Transmission Date: 20120608
  Serious: No
  Sender: FDA-Public Use
  Company Number: US-ABBOTT-11P-163-0715407-00

PATIENT
  Sex: Female
  Weight: 68.1 kg

DRUGS (6)
  1. CALCIUM WITH VITAMIN D [Concomitant]
     Indication: PRODUCT USED FOR UNKNOWN INDICATION
  2. MULTI-VITAMINS [Concomitant]
     Indication: PRODUCT USED FOR UNKNOWN INDICATION
  3. CITRUCEL [Concomitant]
     Indication: PRODUCT USED FOR UNKNOWN INDICATION
  4. HUMIRA [Suspect]
     Indication: RHEUMATOID ARTHRITIS
     Dosage: EVERY THREE TO FOUR WEEKS
     Dates: start: 20080101
  5. PORTIA-21 [Concomitant]
     Indication: CONTRACEPTION
  6. HUMIRA [Suspect]
     Indication: PSORIASIS

REACTIONS (3)
  - RESPIRATORY TRACT CONGESTION [None]
  - LOWER RESPIRATORY TRACT INFECTION [None]
  - INFECTION [None]
